FAERS Safety Report 8373036-6 (Version None)
Quarter: 2012Q2

REPORT INFORMATION
  Report Type: 
  Country: None (occurrence: None)
  Receive Date: 20120521
  Receipt Date: 20120510
  Transmission Date: 20120825
  Serious: Yes (Other)
  Sender: FDA-Public Use
  Company Number: US-VERTEX PHARMACEUTICALS INC.-AE-2012-006867

PATIENT
  Sex: Male
  Weight: 74.002 kg

DRUGS (3)
  1. RIBAVIRIN [Concomitant]
     Indication: HEPATITIS C
     Dates: start: 20120329, end: 20120507
  2. PEGASYS [Concomitant]
     Indication: HEPATITIS C
     Dates: start: 20120329, end: 20120507
  3. INCIVEK [Suspect]
     Indication: HEPATITIS C
     Route: 048
     Dates: start: 20120329, end: 20120507

REACTIONS (2)
  - WHITE BLOOD CELL COUNT DECREASED [None]
  - STAPHYLOCOCCAL INFECTION [None]
